FAERS Safety Report 25243523 (Version 3)
Quarter: 2025Q3

REPORT INFORMATION
  Report Type: Report from Study
  Country: US (occurrence: US)
  Receive Date: 20250428
  Receipt Date: 20250702
  Transmission Date: 20251021
  Serious: No
  Sender: SUNOVION
  Company Number: US-SUMITOMO PHARMA SWITZERLAND GMBH-2025SPA004040

PATIENT

DRUGS (19)
  1. ORGOVYX [Suspect]
     Active Substance: RELUGOLIX
     Indication: Prostate cancer
     Dosage: 360 MG, SINGLE
     Route: 048
     Dates: start: 202503, end: 202503
  2. ORGOVYX [Suspect]
     Active Substance: RELUGOLIX
     Dosage: 120 MG, QD
     Route: 048
     Dates: start: 202503
  3. AMLODIPINE [Concomitant]
     Active Substance: AMLODIPINE BESYLATE
     Route: 065
  4. BACLOFEN [Concomitant]
     Active Substance: BACLOFEN
     Route: 065
  5. BICALUTAMIDE [Concomitant]
     Active Substance: BICALUTAMIDE
     Route: 065
  6. COLACE [Concomitant]
     Active Substance: DOCUSATE SODIUM
     Route: 065
  7. MILK OF MAGNESIA [Concomitant]
     Active Substance: MAGNESIUM HYDROXIDE
     Route: 065
  8. Dulcolax [Concomitant]
     Route: 065
  9. FLEET ENEMA [Concomitant]
     Active Substance: SODIUM PHOSPHATE, DIBASIC\SODIUM PHOSPHATE, MONOBASIC
     Route: 065
  10. FLOMAX [Concomitant]
     Active Substance: TAMSULOSIN HYDROCHLORIDE
     Route: 065
  11. KEPPRA [Concomitant]
     Active Substance: LEVETIRACETAM
     Route: 065
  12. METOPROLOL TARTRATE [Concomitant]
     Active Substance: METOPROLOL TARTRATE
     Route: 065
  13. Mouth kote [Concomitant]
     Route: 065
  14. SODIUM FLUORIDE [Concomitant]
     Active Substance: SODIUM FLUORIDE
     Route: 065
  15. TYLENOL [Concomitant]
     Active Substance: ACETAMINOPHEN
     Route: 065
  16. VITAMIN C [Concomitant]
     Active Substance: ASCORBIC ACID
     Route: 065
  17. ASCORBIC ACID\IRON [Concomitant]
     Active Substance: ASCORBIC ACID\IRON
     Route: 048
  18. XTANDI [Concomitant]
     Active Substance: ENZALUTAMIDE
     Route: 065
  19. REFRESH DIGITAL [Concomitant]
     Active Substance: CARBOXYMETHYLCELLULOSE SODIUM\GLYCERIN\POLYSORBATE 80
     Route: 047

REACTIONS (4)
  - Blood pressure increased [Unknown]
  - Hypervigilance [Unknown]
  - Confusional state [Unknown]
  - Product dose omission issue [Unknown]
